FAERS Safety Report 5725344-2 (Version None)
Quarter: 2008Q2

REPORT INFORMATION
  Report Type: 
  Country: None (occurrence: None)
  Receive Date: 20080501
  Receipt Date: 20080421
  Transmission Date: 20081010
  Serious: Yes (Other)
  Sender: FDA-Public Use
  Company Number: CA-PFIZER INC-2008035837

PATIENT
  Age: 41 Year
  Sex: Female

DRUGS (4)
  1. CHAMPIX [Suspect]
     Indication: EX-SMOKER
     Route: 048
  2. ALCOHOL [Suspect]
     Dates: start: 20080417, end: 20080417
  3. CRESTOR [Concomitant]
  4. CIPRALEX [Concomitant]

REACTIONS (3)
  - AMNESIA [None]
  - LOSS OF CONSCIOUSNESS [None]
  - VOMITING [None]
